FAERS Safety Report 20804947 (Version 5)
Quarter: 2022Q2

REPORT INFORMATION
  Report Type: Report from Study
  Country: CN (occurrence: CN)
  Receive Date: 20220509
  Receipt Date: 20220623
  Transmission Date: 20220721
  Serious: Yes (Death, Life-Threatening)
  Sender: FDA-Public Use
  Company Number: CN-PFIZER INC-202200653702

PATIENT
  Age: 79 Year
  Sex: Female
  Weight: 55 kg

DRUGS (98)
  1. MEROPENEM [Suspect]
     Active Substance: MEROPENEM
     Indication: Pneumonia klebsiella
     Dosage: 1 G, 4X/DAY (Q6H)
     Route: 041
     Dates: start: 20220427, end: 20220503
  2. MEROPENEM [Suspect]
     Active Substance: MEROPENEM
     Dosage: 2 G, 3X/DAY (Q8H) (PUMPING)
     Route: 041
     Dates: start: 20220503, end: 20220503
  3. TIGECYCLINE [Suspect]
     Active Substance: TIGECYCLINE
     Indication: Pneumonia klebsiella
     Dosage: 100 MG, 2X/DAY (Q12H)
     Route: 041
     Dates: start: 20220426, end: 20220427
  4. TIGECYCLINE [Suspect]
     Active Substance: TIGECYCLINE
     Dosage: 100 MG, 2X/DAY (Q12H)
     Route: 041
     Dates: start: 20220427, end: 20220503
  5. TIGECYCLINE [Suspect]
     Active Substance: TIGECYCLINE
     Dosage: 100 MG, 2X/DAY (Q12H)
     Route: 041
     Dates: start: 20220503, end: 20220503
  6. AMBROXOL HYDROCHLORIDE [Concomitant]
     Active Substance: AMBROXOL HYDROCHLORIDE
     Indication: Cough
     Dosage: 30 MG, 2X/DAY
     Route: 041
     Dates: start: 20220420, end: 20220422
  7. AMBROXOL HYDROCHLORIDE [Concomitant]
     Active Substance: AMBROXOL HYDROCHLORIDE
     Indication: Productive cough
     Dosage: 90 MG, 2X/DAY (PUMPING)
     Route: 041
     Dates: start: 20220421, end: 20220423
  8. AMBROXOL HYDROCHLORIDE [Concomitant]
     Active Substance: AMBROXOL HYDROCHLORIDE
     Indication: Productive cough
     Dosage: 30 MG, 2X/DAY
     Route: 041
     Dates: start: 20220424, end: 20220427
  9. AMBROXOL HYDROCHLORIDE [Concomitant]
     Active Substance: AMBROXOL HYDROCHLORIDE
     Dosage: 30 MG, 2X/DAY
     Route: 041
     Dates: start: 20220427, end: 20220503
  10. ESOMEPRAZOLE SODIUM [Concomitant]
     Active Substance: ESOMEPRAZOLE SODIUM
     Indication: Prophylaxis
     Dosage: 40 MG, 2X/DAY
     Route: 041
     Dates: start: 20220420, end: 20220422
  11. ESOMEPRAZOLE SODIUM [Concomitant]
     Active Substance: ESOMEPRAZOLE SODIUM
     Dosage: 40 MG, 2X/DAY
     Route: 041
     Dates: start: 20220421, end: 20220423
  12. CEFOPERAZONE SODIUM\SULBACTAM SODIUM [Concomitant]
     Active Substance: CEFOPERAZONE SODIUM\SULBACTAM SODIUM
     Indication: Prophylaxis
     Dosage: 1.5 G, 3X/DAY
     Route: 041
     Dates: start: 20220420, end: 20220422
  13. CEFOPERAZONE SODIUM\SULBACTAM SODIUM [Concomitant]
     Active Substance: CEFOPERAZONE SODIUM\SULBACTAM SODIUM
     Indication: Pneumonia klebsiella
     Dosage: 1.5 G (SURGERY IN) ST
     Dates: start: 20220421, end: 20220421
  14. CEFOPERAZONE SODIUM\SULBACTAM SODIUM [Concomitant]
     Active Substance: CEFOPERAZONE SODIUM\SULBACTAM SODIUM
     Dosage: 3 G, 2X/DAY (Q12H)
     Route: 041
     Dates: start: 20220421, end: 20220423
  15. CEFOPERAZONE SODIUM\SULBACTAM SODIUM [Concomitant]
     Active Substance: CEFOPERAZONE SODIUM\SULBACTAM SODIUM
     Dosage: 3 G ST
     Route: 041
     Dates: start: 20220423, end: 20220423
  16. CEFOPERAZONE SODIUM\SULBACTAM SODIUM [Concomitant]
     Active Substance: CEFOPERAZONE SODIUM\SULBACTAM SODIUM
     Dosage: 3 G, 3X/DAY (Q8H)
     Route: 041
     Dates: start: 20220424, end: 20220427
  17. CALCIUM GLUCONATE [Concomitant]
     Active Substance: CALCIUM GLUCONATE
     Indication: Mineral supplementation
     Dosage: 10 ML, 1X/DAY
     Route: 041
     Dates: start: 20220421, end: 20220423
  18. CALCIUM GLUCONATE [Concomitant]
     Active Substance: CALCIUM GLUCONATE
     Dosage: 30 ML ST
     Route: 042
     Dates: start: 20220423, end: 20220424
  19. CALCIUM GLUCONATE [Concomitant]
     Active Substance: CALCIUM GLUCONATE
     Dosage: 20 ML ST
     Route: 042
     Dates: start: 20220428, end: 20220428
  20. CALCIUM GLUCONATE [Concomitant]
     Active Substance: CALCIUM GLUCONATE
     Dosage: 40 ML ST (PUMPING)
     Dates: start: 20220502, end: 20220502
  21. DEXAMETHASONE SODIUM PHOSPHATE [Concomitant]
     Active Substance: DEXAMETHASONE SODIUM PHOSPHATE
     Indication: Inflammation
     Dosage: 5 MG, 1X/DAY
     Route: 041
     Dates: start: 20220421, end: 20220423
  22. ALBUMIN HUMAN [Concomitant]
     Active Substance: ALBUMIN HUMAN
     Indication: Supplementation therapy
     Dosage: 10 G, 1X/DAY
     Route: 041
     Dates: start: 20220421, end: 20220423
  23. ALBUMIN HUMAN [Concomitant]
     Active Substance: ALBUMIN HUMAN
     Dosage: 90 G ST
     Route: 041
     Dates: start: 20220501, end: 20220501
  24. ALBUMIN HUMAN [Concomitant]
     Active Substance: ALBUMIN HUMAN
     Dosage: 20 G ST
     Route: 041
     Dates: start: 20220502, end: 20220502
  25. NITROGLYCERIN [Concomitant]
     Active Substance: NITROGLYCERIN
     Indication: Blood pressure measurement
     Dosage: 20 MG, 1X/DAY
     Dates: start: 20220421, end: 20220423
  26. NITROGLYCERIN [Concomitant]
     Active Substance: NITROGLYCERIN
     Indication: Hypotension
     Dosage: 50 MG ST (PUMPING)
     Dates: start: 20220425, end: 20220426
  27. DOPAMINE HYDROCHLORIDE [Concomitant]
     Active Substance: DOPAMINE HYDROCHLORIDE
     Indication: Cardiac disorder
     Dosage: 180 MG, 1X/DAY
     Dates: start: 20220421, end: 20220423
  28. DOPAMINE HYDROCHLORIDE [Concomitant]
     Active Substance: DOPAMINE HYDROCHLORIDE
     Dosage: 180 MG ST (PUMPING)
     Dates: start: 20220423, end: 20220424
  29. MOXIFLOXACIN HYDROCHLORIDE [Concomitant]
     Active Substance: MOXIFLOXACIN HYDROCHLORIDE
     Indication: Prophylaxis
     Dosage: 0.4 G, 1X/DAY
     Route: 041
     Dates: start: 20220421, end: 20220423
  30. COMPOUND AMINO ACIDS INJECTION (18AA-IX) [Concomitant]
     Indication: Supplementation therapy
     Dosage: 400 ML, DAILY
     Route: 041
     Dates: start: 20220423, end: 20220423
  31. COMPOUND AMINO ACIDS INJECTION (18AA-IX) [Concomitant]
     Dosage: 200 ML, 2X/DAY
     Dates: start: 20220424, end: 20220427
  32. ENTERAL NUTRITIONAL SUSPENSION (SP) [Concomitant]
     Indication: Supplementation therapy
     Dosage: 500 ML, 1X/DAY (ENTERAL NUTRITION)
     Dates: start: 20220424, end: 20220425
  33. ENTERAL NUTRITIONAL SUSPENSION (SP) [Concomitant]
     Dosage: 1000 ML, 1X/DAY (ENTERAL NUTRITION)
     Dates: start: 20220425, end: 20220501
  34. POTASSIUM CHLORIDE [Concomitant]
     Active Substance: POTASSIUM CHLORIDE
     Indication: Supplementation therapy
     Dosage: 20 ML ST (PUMPING)
     Dates: start: 20220422, end: 20220422
  35. POTASSIUM CHLORIDE [Concomitant]
     Active Substance: POTASSIUM CHLORIDE
     Indication: Mineral supplementation
     Dosage: 20 ML ST (PUMPING)
     Dates: start: 20220423, end: 20220423
  36. POTASSIUM CHLORIDE [Concomitant]
     Active Substance: POTASSIUM CHLORIDE
     Indication: Fluid replacement
     Dosage: 30 ML ST (PUMPING)
     Dates: start: 20220423, end: 20220424
  37. POTASSIUM CHLORIDE [Concomitant]
     Active Substance: POTASSIUM CHLORIDE
     Dosage: 5 ML, 2X/DAY
     Route: 041
     Dates: start: 20220424, end: 20220427
  38. POTASSIUM CHLORIDE [Concomitant]
     Active Substance: POTASSIUM CHLORIDE
     Dosage: 30 ML ST (PUMPING)
     Route: 041
     Dates: start: 20220428, end: 20220428
  39. POTASSIUM CHLORIDE [Concomitant]
     Active Substance: POTASSIUM CHLORIDE
     Dosage: 30 ML ST (PUMPING)
     Dates: start: 20220430, end: 20220430
  40. SODIUM BICARBONATE [Concomitant]
     Active Substance: SODIUM BICARBONATE
     Indication: Acid base balance
     Dosage: 150 ML ST
     Route: 041
     Dates: start: 20220502, end: 20220502
  41. HEPARIN SODIUM [Concomitant]
     Active Substance: HEPARIN SODIUM
     Indication: Anticoagulant therapy
     Dosage: 1.25 WAN U ST (FLUSH)
     Dates: start: 20220501, end: 20220501
  42. LIDOCAINE HYDROCHLORIDE [Concomitant]
     Active Substance: LIDOCAINE HYDROCHLORIDE
     Indication: Local anaesthesia
     Dosage: 2.5 ML ST
     Route: 042
     Dates: start: 20220425, end: 20220425
  43. LIDOCAINE HYDROCHLORIDE [Concomitant]
     Active Substance: LIDOCAINE HYDROCHLORIDE
     Indication: Arrhythmia
     Dosage: 5 ML ST
     Route: 058
     Dates: start: 20220427, end: 20220427
  44. LIDOCAINE HYDROCHLORIDE [Concomitant]
     Active Substance: LIDOCAINE HYDROCHLORIDE
     Dosage: 1 BRANCH ST
     Route: 058
     Dates: start: 20220428, end: 20220428
  45. LIDOCAINE HYDROCHLORIDE [Concomitant]
     Active Substance: LIDOCAINE HYDROCHLORIDE
     Dosage: 5 ML ST
     Route: 058
     Dates: start: 20220502, end: 20220502
  46. VITAMIN K1 [Concomitant]
     Active Substance: PHYTONADIONE
     Indication: Procedural complication
     Dosage: 30 MG ST (PUMPING)
     Dates: start: 20220502, end: 20220502
  47. LYSINE ACETYLSALICYLATE [Concomitant]
     Active Substance: ASPIRIN DL-LYSINE
     Indication: Pyrexia
     Dosage: 0.9 G ST
     Route: 042
     Dates: start: 20220426, end: 20220426
  48. LYSINE ACETYLSALICYLATE [Concomitant]
     Active Substance: ASPIRIN DL-LYSINE
     Dosage: 0.9 G ST (PUSH)
     Route: 042
     Dates: start: 20220501, end: 20220501
  49. LYSINE ACETYLSALICYLATE [Concomitant]
     Active Substance: ASPIRIN DL-LYSINE
     Dosage: 0.9 G ST (PUSH)
     Route: 042
     Dates: start: 20220502, end: 20220502
  50. GLYCERIN [Concomitant]
     Active Substance: GLYCERIN
     Indication: Laxative supportive care
     Dosage: 4 BRANCH ST (ENEMA)
     Dates: start: 20220502, end: 20220502
  51. DEXTROSE [Concomitant]
     Active Substance: DEXTROSE
     Indication: Supplementation therapy
     Dosage: 20 ML ST (50%)
     Route: 042
     Dates: start: 20220502, end: 20220502
  52. REMIFENTANIL HYDROCHLORIDE [Concomitant]
     Active Substance: REMIFENTANIL HYDROCHLORIDE
     Indication: Analgesic therapy
     Dosage: 8 MG ST (PUMPING)
     Dates: start: 20220501, end: 20220502
  53. SUCCINYLATED GELATIN [Concomitant]
     Active Substance: SUCCINYLATED GELATIN
     Indication: Fluid replacement
     Dosage: 1000 ML ST
     Route: 041
     Dates: start: 20220501, end: 20220501
  54. MIDAZOLAM [Concomitant]
     Active Substance: MIDAZOLAM
     Indication: Feeling of relaxation
     Dosage: 100 MG ST (PUMPING)
     Dates: start: 20220423, end: 20220424
  55. MIDAZOLAM [Concomitant]
     Active Substance: MIDAZOLAM
     Dosage: 100 MG ST (PUMPING)
     Dates: start: 20220501, end: 20220502
  56. VECURONIUM BROMIDE [Concomitant]
     Active Substance: VECURONIUM BROMIDE
     Indication: Relaxation therapy
     Dosage: 4 MG ST
     Route: 042
     Dates: start: 20220501, end: 20220501
  57. FUROSEMIDE [Concomitant]
     Active Substance: FUROSEMIDE
     Indication: Polyuria
     Dosage: 100 MG ST (PUMPING)
     Route: 042
     Dates: start: 20220422, end: 20220422
  58. FUROSEMIDE [Concomitant]
     Active Substance: FUROSEMIDE
     Dosage: 500 MG ST (PUMPING)
     Route: 042
     Dates: start: 20220422, end: 20220422
  59. FUROSEMIDE [Concomitant]
     Active Substance: FUROSEMIDE
     Dosage: 20 MG ST (PUMPING)
     Route: 042
     Dates: start: 20220425, end: 20220425
  60. FUROSEMIDE [Concomitant]
     Active Substance: FUROSEMIDE
     Dosage: 60 MG, PRN (PUMPING)
     Route: 042
     Dates: start: 20220427, end: 20220430
  61. FUROSEMIDE [Concomitant]
     Active Substance: FUROSEMIDE
     Dosage: 20 MG ST
     Route: 042
     Dates: start: 20220501, end: 20220501
  62. AMIODARONE HYDROCHLORIDE [Concomitant]
     Active Substance: AMIODARONE HYDROCHLORIDE
     Indication: Heart rate
     Dosage: 0.15 G ST (PUMPING)
     Route: 042
     Dates: start: 20220424, end: 20220424
  63. AMIODARONE HYDROCHLORIDE [Concomitant]
     Active Substance: AMIODARONE HYDROCHLORIDE
     Indication: Arrhythmia
     Dosage: 0.3 G ST (PUMPING)
     Route: 042
     Dates: start: 20220424, end: 20220425
  64. AMIODARONE HYDROCHLORIDE [Concomitant]
     Active Substance: AMIODARONE HYDROCHLORIDE
     Dosage: 0.3 G ST (PUMPING)
     Route: 042
     Dates: start: 20220425, end: 20220425
  65. AMIODARONE HYDROCHLORIDE [Concomitant]
     Active Substance: AMIODARONE HYDROCHLORIDE
     Dosage: 0.15 G ST
     Route: 042
     Dates: start: 20220501, end: 20220501
  66. AMIODARONE HYDROCHLORIDE [Concomitant]
     Active Substance: AMIODARONE HYDROCHLORIDE
     Dosage: 0.45 G ST (PUMPING) (PUSH)
     Route: 042
     Dates: start: 20220501, end: 20220501
  67. DESLANOSIDE [Concomitant]
     Active Substance: DESLANOSIDE
     Indication: Cardiac disorder
     Dosage: 0.4 MG ST (PUSH)
     Route: 042
     Dates: start: 20220501, end: 20220501
  68. DIGOXIN [Concomitant]
     Active Substance: DIGOXIN
     Indication: Cardiac disorder
     Dosage: 0.5 MG ST
     Route: 042
     Dates: start: 20220423, end: 20220423
  69. DIGOXIN [Concomitant]
     Active Substance: DIGOXIN
     Dosage: 0.5 MG ST
     Route: 042
     Dates: start: 20220501, end: 20220501
  70. DOBUTAMINE HYDROCHLORIDE [Concomitant]
     Active Substance: DOBUTAMINE HYDROCHLORIDE
     Indication: Cardiac disorder
     Dosage: 180 MG ST (PUMPING)
     Dates: start: 20220424, end: 20220425
  71. SODIUM LACTATE RINGER^S [Concomitant]
     Indication: Fluid replacement
     Dosage: 500 ML ST
     Route: 041
     Dates: start: 20220424, end: 20220424
  72. SODIUM LACTATE RINGER^S [Concomitant]
     Dosage: 3000 ML ST
     Route: 041
     Dates: start: 20220501, end: 20220501
  73. ARGININE HYDROCHLORIDE [Concomitant]
     Active Substance: ARGININE HYDROCHLORIDE
     Indication: Acid base balance
     Dosage: 20 ML ST (PUMPING)
     Dates: start: 20220423, end: 20220423
  74. ARGININE HYDROCHLORIDE [Concomitant]
     Active Substance: ARGININE HYDROCHLORIDE
     Dosage: 60 ML ST (PUMPING)
     Dates: start: 20220501, end: 20220501
  75. ESMOLOL HYDROCHLORIDE [Concomitant]
     Active Substance: ESMOLOL HYDROCHLORIDE
     Indication: Heart rate
     Dosage: 1 G ST (PUMPING)
     Dates: start: 20220423, end: 20220423
  76. ESMOLOL HYDROCHLORIDE [Concomitant]
     Active Substance: ESMOLOL HYDROCHLORIDE
     Dosage: 1 G ST (PUMPING)
     Dates: start: 20220425, end: 20220425
  77. ESMOLOL HYDROCHLORIDE [Concomitant]
     Active Substance: ESMOLOL HYDROCHLORIDE
     Dosage: 1 G ST (PUMPING)
     Dates: start: 20220428, end: 20220428
  78. ESMOLOL HYDROCHLORIDE [Concomitant]
     Active Substance: ESMOLOL HYDROCHLORIDE
     Dosage: 1 G ST (PUMPING)
     Dates: start: 20220429, end: 20220429
  79. ESMOLOL HYDROCHLORIDE [Concomitant]
     Active Substance: ESMOLOL HYDROCHLORIDE
     Dosage: 1 G ST (PUMPING)
     Dates: start: 20220430, end: 20220430
  80. DEZOCINE [Concomitant]
     Active Substance: DEZOCINE
     Indication: Analgesic therapy
     Dosage: 10 MG ST (PUMPING)
     Dates: start: 20220421, end: 20220421
  81. DEZOCINE [Concomitant]
     Active Substance: DEZOCINE
     Indication: Arrested labour
     Dosage: 20 MG ST (PUMPING)
     Dates: start: 20220429, end: 20220430
  82. PROPOFOL [Concomitant]
     Active Substance: PROPOFOL
     Indication: Relaxation therapy
     Dosage: 500 MG ST (PUMPING)
     Route: 042
     Dates: start: 20220422, end: 20220422
  83. PROPOFOL [Concomitant]
     Active Substance: PROPOFOL
     Dosage: 500 MG ST (PUMPING)
     Route: 042
     Dates: start: 20220423, end: 20220423
  84. PROPOFOL [Concomitant]
     Active Substance: PROPOFOL
     Dosage: 500 MG ST (PUMPING)
     Route: 042
     Dates: start: 20220427, end: 20220427
  85. NOREPINEPHRINE BITARTRATE [Concomitant]
     Active Substance: NOREPINEPHRINE BITARTRATE
     Indication: Blood pressure increased
     Dosage: 10 MG, PRN (PUMPING)
     Dates: start: 20220427, end: 20220503
  86. SUFENTANIL CITRATE [Concomitant]
     Active Substance: SUFENTANIL CITRATE
     Indication: Pain
     Dosage: 200 UG ST (PUMPING)
     Dates: start: 20220423, end: 20220425
  87. SUFENTANIL CITRATE [Concomitant]
     Active Substance: SUFENTANIL CITRATE
     Dosage: 200 UG ST (PUMPING)
     Dates: start: 20220427, end: 20220430
  88. DEXMEDETOMIDINE HYDROCHLORIDE [Concomitant]
     Active Substance: DEXMEDETOMIDINE HYDROCHLORIDE
     Indication: Relaxation therapy
     Dosage: 0.6 MG ST (PUMPING)
     Dates: start: 20220426, end: 20220427
  89. DILTIAZEM HYDROCHLORIDE [Concomitant]
     Active Substance: DILTIAZEM HYDROCHLORIDE
     Indication: Hypotension
     Dosage: 40 MG ST (PUMPING)
     Dates: start: 20220426, end: 20220426
  90. INSULIN HUMAN [Concomitant]
     Active Substance: INSULIN HUMAN
     Indication: Blood glucose decreased
     Dosage: 8 IU ST
     Route: 058
     Dates: start: 20220425, end: 20220425
  91. INSULIN HUMAN [Concomitant]
     Active Substance: INSULIN HUMAN
     Dosage: 50 IU ST (PUMPING)
     Route: 058
     Dates: start: 20220429, end: 20220429
  92. CARBAZOCHROME SODIUM SULFONATE [Concomitant]
     Active Substance: CARBAZOCHROME SODIUM SULFONATE
     Indication: Anticoagulant therapy
     Dosage: 80 MG ST
     Route: 041
     Dates: start: 20220428, end: 20220428
  93. MAGNESIUM SULFATE [Concomitant]
     Active Substance: MAGNESIUM SULFATE
     Indication: Blood potassium decreased
     Dosage: 5 ML ST (PUMPING)
     Dates: start: 20220423, end: 20220423
  94. PROTHROMBIN COMPLEX CONCENTRATE NOS [Concomitant]
     Active Substance: COAGULATION FACTOR IX HUMAN\COAGULATION FACTOR VII HUMAN\COAGULATION FACTOR X HUMAN\PROTHROMBIN
     Indication: Haemostasis
     Dosage: 200 IU ST (SURGERY IN)
     Dates: start: 20220421, end: 20220421
  95. FIBRINOGEN HUMAN [Concomitant]
     Active Substance: FIBRINOGEN HUMAN
     Indication: Haemostasis
     Dosage: 0.5 G ST
     Dates: start: 20220421, end: 20220421
  96. ACETYLCYSTEINE [Concomitant]
     Active Substance: ACETYLCYSTEINE
     Indication: Productive cough
     Dosage: 0.3 G, 3X/DAY
     Route: 055
     Dates: start: 20220429, end: 20220502
  97. AMLODIPINE BESYLATE [Concomitant]
     Active Substance: AMLODIPINE BESYLATE
     Indication: Hypertension
     Dosage: 5 MG, 1X/DAY (QD) (PUMPING)
     Dates: start: 20220426, end: 20220427
  98. SODIUM GLYCEROPHOSPHATE [Concomitant]
     Active Substance: SODIUM GLYCEROPHOSPHATE
     Indication: Prophylaxis
     Dosage: 10 ML, 1X/DAY
     Route: 041
     Dates: start: 20220426, end: 20220428

REACTIONS (2)
  - Septic shock [Fatal]
  - Cardiac failure acute [Fatal]

NARRATIVE: CASE EVENT DATE: 20220501
